FAERS Safety Report 14299391 (Version 1)
Quarter: 2017Q4

REPORT INFORMATION
  Report Type: Spontaneous
  Country: ES (occurrence: ES)
  Receive Date: 20171219
  Receipt Date: 20171219
  Transmission Date: 20180321
  Serious: Yes (Hospitalization)
  Sender: FDA-Public Use
  Company Number: ES-CIPLA LTD.-2017ES23128

PATIENT

DRUGS (4)
  1. FUROSEMIDE. [Suspect]
     Active Substance: FUROSEMIDE
     Indication: ATRIAL FIBRILLATION
     Dosage: UNK
     Route: 065
  2. METFORMIN [Suspect]
     Active Substance: METFORMIN HYDROCHLORIDE
     Indication: TYPE 2 DIABETES MELLITUS
     Dosage: 850 MG, PER 8 HOURS
     Route: 065
  3. SINTROM [Suspect]
     Active Substance: ACENOCOUMAROL
     Indication: ATRIAL FIBRILLATION
     Dosage: UNK
     Route: 065
  4. IRBESARTAN. [Suspect]
     Active Substance: IRBESARTAN
     Indication: HYPERTENSION
     Dosage: UNK
     Route: 065

REACTIONS (3)
  - Toxicity to various agents [Unknown]
  - Depressed level of consciousness [Unknown]
  - Lactic acidosis [Unknown]
